FAERS Safety Report 9312768 (Version 2)
Quarter: 2013Q4

REPORT INFORMATION
  Report Type: Spontaneous
  Country: US (occurrence: US)
  Receive Date: 20130528
  Receipt Date: 20131108
  Transmission Date: 20140711
  Serious: Yes (Death, Hospitalization)
  Sender: FDA-Public Use
  Company Number: US-B.I. PHARMACEUTICALS,INC./RIDGEFIELD-2013-BI-14577BP

PATIENT
  Age: 87 Year
  Sex: Male
  Weight: 68.04 kg

DRUGS (8)
  1. PRADAXA [Suspect]
     Indication: ANTICOAGULANT THERAPY
     Route: 048
     Dates: start: 20110325, end: 20120817
  2. PRADAXA [Suspect]
     Indication: ATRIAL FIBRILLATION
  3. CARVEDILOL [Concomitant]
     Dosage: 12.5 MG
     Route: 048
  4. VITAMIN B12 [Concomitant]
  5. ENALAPRIL [Concomitant]
     Dosage: 5 MG
     Route: 048
  6. LASIX [Concomitant]
     Dosage: 5 MG
     Route: 048
  7. OMEPRAZOL [Concomitant]
  8. THIAMIN [Concomitant]

REACTIONS (3)
  - Acute respiratory failure [Fatal]
  - Epistaxis [Unknown]
  - Gastrointestinal haemorrhage [Fatal]
